FAERS Safety Report 7309779-2 (Version None)
Quarter: 2011Q1

REPORT INFORMATION
  Report Type: 
  Country: None (occurrence: None)
  Receive Date: 20110224
  Receipt Date: 20110210
  Transmission Date: 20110831
  Serious: No
  Sender: FDA-Public Use
  Company Number: US-BIOGENIDEC-2011BI006069

PATIENT
  Age: 28 Year
  Sex: Female

DRUGS (3)
  1. TYSABRI [Suspect]
     Route: 042
     Dates: start: 20080722, end: 20100205
  2. TYSABRI [Suspect]
     Indication: MULTIPLE SCLEROSIS
     Route: 042
     Dates: end: 20110105
  3. TYSABRI [Suspect]
     Route: 042
     Dates: start: 20100629, end: 20100629

REACTIONS (3)
  - MULTIPLE SCLEROSIS RELAPSE [None]
  - SWELLING FACE [None]
  - SWELLING [None]
